FAERS Safety Report 13705250 (Version 1)
Quarter: 2017Q2

REPORT INFORMATION
  Report Type: Spontaneous
  Country: None (occurrence: US)
  Receive Date: 20170629
  Receipt Date: 20170629
  Transmission Date: 20170830
  Serious: No
  Sender: FDA-Public Use
  Company Number: None

PATIENT
  Age: 56 Year
  Sex: Female

DRUGS (1)
  1. HUMIRA [Suspect]
     Active Substance: ADALIMUMAB
     Indication: RHEUMATOID ARTHRITIS
     Dosage: 40MG EVERY OTHER WEEK
     Route: 058
     Dates: start: 20170619

REACTIONS (7)
  - Nausea [None]
  - Throat irritation [None]
  - Dizziness [None]
  - Fatigue [None]
  - Oropharyngeal pain [None]
  - Headache [None]
  - Feeling cold [None]
